FAERS Safety Report 4944859-8 (Version None)
Quarter: 2006Q1

REPORT INFORMATION
  Report Type: 
  Country: None (occurrence: None)
  Receive Date: 20060315
  Receipt Date: 20051214
  Transmission Date: 20060701
  Serious: Yes (Hospitalization, Other)
  Sender: FDA-Public Use
  Company Number: US-MERCK-0512USA02369

PATIENT
  Age: 54 Year
  Sex: Female

DRUGS (1)
  1. VIOXX [Suspect]
     Route: 048

REACTIONS (9)
  - ABSCESS LIMB [None]
  - ARTERIOSCLEROSIS [None]
  - CELLULITIS [None]
  - EAR PAIN [None]
  - MYOCARDIAL INFARCTION [None]
  - OSTEOMYELITIS [None]
  - PNEUMONIA KLEBSIELLA [None]
  - SEPSIS [None]
  - SKIN ULCER [None]
